FAERS Safety Report 12978446 (Version 1)
Quarter: 2016Q4

REPORT INFORMATION
  Report Type: Spontaneous
  Country: US (occurrence: US)
  Receive Date: 20161123
  Receipt Date: 20161123
  Transmission Date: 20170207
  Serious: No
  Sender: FDA-Public Use
  Company Number: None

PATIENT
  Age: 11 Year
  Sex: Male

DRUGS (1)
  1. JADENU [Suspect]
     Active Substance: DEFERASIROX
     Indication: SICKLE CELL ANAEMIA
     Dosage: 2 TABS QD BEFORE MEAL PO
     Route: 048
     Dates: start: 20161116

REACTIONS (1)
  - Chromaturia [None]

NARRATIVE: CASE EVENT DATE: 20161123
